FAERS Safety Report 16288236 (Version 2)
Quarter: 2019Q2

REPORT INFORMATION
  Report Type: Spontaneous
  Country: DE (occurrence: DE)
  Receive Date: 20190508
  Receipt Date: 20190524
  Transmission Date: 20190711
  Serious: Yes (Hospitalization)
  Sender: FDA-Public Use
  Company Number: PHHY2019DE104658

PATIENT
  Age: 22 Year
  Sex: Male
  Weight: 95 kg

DRUGS (14)
  1. ISONIAZID. [Suspect]
     Active Substance: ISONIAZID
     Dosage: 200 MG, UNK
     Route: 048
  2. ETHAMBUTOL [Suspect]
     Active Substance: ETHAMBUTOL HYDROCHLORIDE
     Indication: TUBERCULOSIS
     Dosage: 1000 MG, UNK
     Route: 048
  3. PYRAZINAMIDE. [Suspect]
     Active Substance: PYRAZINAMIDE
     Indication: TUBERCULOSIS
  4. PYRIDOXINE HYDROCHLORIDE. [Concomitant]
     Active Substance: PYRIDOXINE HYDROCHLORIDE
     Indication: PROPHYLAXIS
     Route: 065
  5. RIFAMPIN. [Suspect]
     Active Substance: RIFAMPIN
     Indication: TUBERCULOSIS
     Dosage: 450 MG, UNK
     Route: 048
  6. ETHAMBUTOL [Suspect]
     Active Substance: ETHAMBUTOL HYDROCHLORIDE
     Dosage: INITIALLY, GIVEN IV AS HE WAS BARELY ABLE TO EAT
     Route: 042
  7. ISONIAZID. [Suspect]
     Active Substance: ISONIAZID
     Indication: TUBERCULOSIS
     Dosage: 200 MG, UNK
     Route: 048
  8. LEVOFLOXACIN. [Suspect]
     Active Substance: LEVOFLOXACIN
     Dosage: INITIALLY, GIVEN IV AS HE WAS BARELY ABLE TO EAT
     Route: 042
  9. ISONIAZID. [Suspect]
     Active Substance: ISONIAZID
     Dosage: INITIALLY, GIVEN IV AS HE WAS BARELY ABLE TO EAT
     Route: 042
  10. LEVOFLOXACIN. [Suspect]
     Active Substance: LEVOFLOXACIN
     Indication: TUBERCULOSIS
     Dosage: 500 MG, UNK
     Route: 042
  11. RIFAMPIN. [Suspect]
     Active Substance: RIFAMPIN
     Indication: TUBERCULOSIS
     Dosage: 450 MG, UNK
     Route: 048
  12. PYRAZINAMIDE. [Suspect]
     Active Substance: PYRAZINAMIDE
     Indication: TUBERCULOSIS
     Dosage: 1500 MG, UNK
     Route: 048
  13. RIFAMPIN. [Suspect]
     Active Substance: RIFAMPIN
     Dosage: INITIALLY, GIVEN IV AS HE WAS BARELY ABLE TO EAT
     Route: 042
  14. ETHAMBUTOL [Suspect]
     Active Substance: ETHAMBUTOL HYDROCHLORIDE
     Indication: TUBERCULOSIS
     Dosage: 1000 MG, UNK
     Route: 048

REACTIONS (13)
  - Cryptococcosis [Recovered/Resolved]
  - Paradoxical drug reaction [Recovered/Resolved]
  - Brain oedema [Recovered/Resolved]
  - Haemoglobin decreased [Recovered/Resolved]
  - Headache [Recovered/Resolved]
  - Muscular weakness [Recovered/Resolved]
  - Hemiplegia [Recovered/Resolved]
  - Vomiting [Recovered/Resolved]
  - Disorientation [Recovered/Resolved]
  - Pyrexia [Recovered/Resolved]
  - Central nervous system necrosis [Recovered/Resolved]
  - Immune reconstitution inflammatory syndrome [Recovered/Resolved]
  - Unmasking of previously unidentified disease [Recovered/Resolved]
